FAERS Safety Report 8263311-8 (Version None)
Quarter: 2012Q1

REPORT INFORMATION
  Report Type: 
  Country: None (occurrence: None)
  Receive Date: 20120327
  Receipt Date: 20081229
  Transmission Date: 20120608
  Serious: Yes (Hospitalization)
  Sender: FDA-Public Use
  Company Number: PHEH2008US11423

PATIENT
  Age: 69 Year
  Sex: Male

DRUGS (1)
  1. GLEEVEC [Suspect]
     Indication: NEUROENDOCRINE TUMOUR
     Dosage: 400 MG, QD
     Dates: start: 20060403

REACTIONS (1)
  - NEOPLASM PROGRESSION [None]
